FAERS Safety Report 18986531 (Version 1)
Quarter: 2021Q1

REPORT INFORMATION
  Report Type: Report from Study
  Country: AU (occurrence: AU)
  Receive Date: 20210309
  Receipt Date: 20210309
  Transmission Date: 20210420
  Serious: Yes (Hospitalization)
  Sender: FDA-Public Use
  Company Number: AU-PFIZER INC-2020213106

PATIENT
  Age: 81 Year
  Sex: Male
  Weight: 74.7 kg

DRUGS (9)
  1. FRUSEMIDE [FUROSEMIDE] [Concomitant]
     Active Substance: FUROSEMIDE
     Indication: CARDIAC FAILURE
     Dosage: 80 MG, 2X/DAY
     Route: 048
     Dates: start: 2018, end: 20200515
  2. NEBIVOLOL. [Concomitant]
     Active Substance: NEBIVOLOL
     Indication: HYPERTENSION
     Dosage: 5 MG, DAILY
     Route: 048
     Dates: start: 2017, end: 20200515
  3. TAFAMIDIS [Suspect]
     Active Substance: TAFAMIDIS MEGLUMINE
     Indication: CARDIAC AMYLOIDOSIS
     Dosage: 61 MG, 1X/DAY
     Route: 048
     Dates: start: 20200403
  4. SPIRONOLACTONE. [Concomitant]
     Active Substance: SPIRONOLACTONE
     Indication: CARDIAC FAILURE
     Dosage: 25 MG, DAILY
     Route: 048
     Dates: start: 20200319, end: 20200515
  5. ALLOPURINOL. [Concomitant]
     Active Substance: ALLOPURINOL
     Indication: GOUT
     Dosage: 150 MG, DAILY
     Route: 048
     Dates: start: 2018, end: 20200515
  6. ANUSOL NOS [Concomitant]
     Active Substance: BALSAM PERU\BENZYL BENZOATE\BISMUTH HYDROXIDE\BISMUTH SUBGALLATE\HYDROCORTISONE ACETATE\ZINC OXIDE
     Indication: HAEMORRHOIDS
     Dosage: 1 APPLICATION, AS REQUIRED
     Route: 061
     Dates: start: 2018
  7. BETAMETHASONE. [Concomitant]
     Active Substance: BETAMETHASONE
     Indication: LIVER DISORDER
     Dosage: 0.05 % (1 APPLICATION), AS REQUIRED
     Route: 061
     Dates: start: 2018
  8. ACTILAX [LACTULOSE] [Concomitant]
     Indication: CONSTIPATION
     Dosage: 15 ML, DAILY
     Route: 048
     Dates: start: 20200404, end: 20200515
  9. MOVICOL [Concomitant]
     Active Substance: POLYETHYLENE GLYCOL 3350\POTASSIUM CHLORIDE\SODIUM BICARBONATE\SODIUM CHLORIDE
     Indication: CONSTIPATION
     Dosage: 1 SACHET, AS REQUIRED
     Route: 048
     Dates: start: 2018

REACTIONS (2)
  - Condition aggravated [Recovered/Resolved with Sequelae]
  - Immune thrombocytopenia [Recovered/Resolved with Sequelae]

NARRATIVE: CASE EVENT DATE: 20200515
